FAERS Safety Report 17494074 (Version 1)
Quarter: 2020Q1

REPORT INFORMATION
  Report Type: Spontaneous
  Country: US (occurrence: US)
  Receive Date: 20200304
  Receipt Date: 20200304
  Transmission Date: 20200409
  Serious: Yes (Death, Hospitalization)
  Sender: FDA-Public Use
  Company Number: US-TEVA-2020-US-1193378

PATIENT
  Age: 14 Year
  Sex: Female

DRUGS (10)
  1. CALCIUM [Suspect]
     Active Substance: CALCIUM
     Indication: CARDIAC ARREST
     Route: 065
  2. VASOPRESSIN. [Suspect]
     Active Substance: VASOPRESSIN
     Indication: CARDIAC ARREST
     Route: 065
  3. EPINEPHRINE. [Suspect]
     Active Substance: EPINEPHRINE
     Indication: CARDIAC ARREST
     Route: 065
  4. POTASSIUM [Suspect]
     Active Substance: POTASSIUM
     Indication: CARDIAC ARREST
     Route: 065
  5. NAPROXEN. [Suspect]
     Active Substance: NAPROXEN
     Indication: COMPLETED SUICIDE
     Route: 048
  6. HYDROXYCHLOROQUINE [Suspect]
     Active Substance: HYDROXYCHLOROQUINE
     Indication: COMPLETED SUICIDE
     Dosage: 6 G MISSING
     Route: 048
  7. NOREPINEPHRINE. [Suspect]
     Active Substance: NOREPINEPHRINE
     Indication: CARDIAC ARREST
     Route: 065
  8. DEXTROSE-50 [Suspect]
     Active Substance: DEXTROSE
     Indication: CARDIAC ARREST
     Route: 065
  9. SODIUM BICARBONATE. [Suspect]
     Active Substance: SODIUM BICARBONATE
     Indication: CARDIAC ARREST
     Dosage: DRIPS
     Route: 065
  10. IBUPROFEN. [Suspect]
     Active Substance: IBUPROFEN
     Indication: COMPLETED SUICIDE
     Route: 048

REACTIONS (6)
  - Drug ineffective [Unknown]
  - Completed suicide [Fatal]
  - Overdose [Unknown]
  - Pulmonary oedema [Fatal]
  - Cardiac arrest [Fatal]
  - Toxicity to various agents [Fatal]
